FAERS Safety Report 7540868-3 (Version None)
Quarter: 2011Q2

REPORT INFORMATION
  Report Type: 
  Country: None (occurrence: None)
  Receive Date: 20110610
  Receipt Date: 20110603
  Transmission Date: 20111010
  Serious: Yes (Hospitalization, Other)
  Sender: FDA-Public Use
  Company Number: FR-ABBOTT-10P-056-0650762-00

PATIENT
  Sex: Female
  Weight: 74 kg

DRUGS (5)
  1. INFLIXIMAB [Suspect]
     Indication: ANKYLOSING SPONDYLITIS
     Route: 042
     Dates: start: 20061108, end: 20080601
  2. ETANERCEPT [Suspect]
     Indication: ANKYLOSING SPONDYLITIS
     Route: 058
     Dates: start: 20080601, end: 20080901
  3. ENBREL [Concomitant]
     Indication: PRODUCT USED FOR UNKNOWN INDICATION
     Dates: start: 20080601
  4. HUMIRA [Suspect]
     Indication: ANKYLOSING SPONDYLITIS
     Route: 058
     Dates: start: 20081001, end: 20100201
  5. METHOTREXATE [Suspect]
     Indication: PRODUCT USED FOR UNKNOWN INDICATION
     Dosage: 5 TO 15 MG WEEKLY
     Route: 048
     Dates: start: 20020101, end: 20090101

REACTIONS (15)
  - PARAESTHESIA [None]
  - MYELODYSPLASTIC SYNDROME [None]
  - SLEEP DISORDER [None]
  - DRUG EFFECT DECREASED [None]
  - SKIN DISORDER [None]
  - LEUKOPENIA [None]
  - GASTROINTESTINAL DISORDER [None]
  - SYNOVITIS [None]
  - ANKYLOSING SPONDYLITIS [None]
  - TENOSYNOVITIS [None]
  - ANAEMIA [None]
  - LIVER DISORDER [None]
  - BRONCHITIS [None]
  - LYMPHOCYTE COUNT DECREASED [None]
  - NEUTROPENIA [None]
